FAERS Safety Report 21891200 (Version 1)
Quarter: 2023Q1

REPORT INFORMATION
  Report Type: Report from Study
  Country: DE (occurrence: DE)
  Receive Date: 20230120
  Receipt Date: 20230120
  Transmission Date: 20230417
  Serious: Yes (Other)
  Sender: FDA-Public Use
  Company Number: DE-MYLANLABS-2023M1007074

PATIENT
  Sex: Male

DRUGS (4)
  1. PACLITAXEL [Suspect]
     Active Substance: PACLITAXEL
     Indication: Prostate cancer metastatic
     Dosage: UNK (SINGLE DOSE ON DAY 1)
     Route: 065
  2. PACLITAXEL [Suspect]
     Active Substance: PACLITAXEL
     Indication: Hormone-refractory prostate cancer
  3. IFOSFAMIDE [Suspect]
     Active Substance: IFOSFAMIDE
     Indication: Prostate cancer metastatic
     Dosage: UNK, CYCLE (DIVIDED OVER 2 TO 3 DAYS)
     Route: 065
  4. IFOSFAMIDE [Suspect]
     Active Substance: IFOSFAMIDE
     Indication: Hormone-refractory prostate cancer

REACTIONS (1)
  - Drug-induced liver injury [Unknown]
